FAERS Safety Report 19993187 (Version 1)
Quarter: 2021Q4

REPORT INFORMATION
  Report Type: Other
  Country: JP (occurrence: JP)
  Receive Date: 20211026
  Receipt Date: 20211026
  Transmission Date: 20220303
  Serious: Yes (Other)
  Sender: FDA-Public Use
  Company Number: JP-CHUGAI-2021022578

PATIENT
  Age: 74 Year
  Sex: Female
  Weight: 52.3 kg

DRUGS (8)
  1. TECENTRIQ [Suspect]
     Active Substance: ATEZOLIZUMAB
     Indication: Lung adenocarcinoma
     Dosage: 1200 MILLIGRAM
     Route: 041
     Dates: start: 20210609
  2. AVASTIN [Suspect]
     Active Substance: BEVACIZUMAB
     Indication: Lung adenocarcinoma
     Dosage: 780 MILLIGRAM
     Route: 041
     Dates: start: 20210609
  3. AVASTIN [Suspect]
     Active Substance: BEVACIZUMAB
     Dosage: 780 MILLIGRAM
     Route: 041
     Dates: start: 20210727
  4. CARBOPLATIN [Suspect]
     Active Substance: CARBOPLATIN
     Indication: Lung adenocarcinoma
     Dosage: 420 MILLIGRAM
     Route: 041
     Dates: start: 20210609
  5. CARBOPLATIN [Suspect]
     Active Substance: CARBOPLATIN
     Dosage: 420 MILLIGRAM
     Route: 041
     Dates: start: 20210630, end: 20210817
  6. PACLITAXEL [Concomitant]
     Active Substance: PACLITAXEL
     Indication: Lung adenocarcinoma
     Dosage: 270 MILLIGRAM
     Route: 041
     Dates: start: 20210609
  7. PACLITAXEL [Concomitant]
     Active Substance: PACLITAXEL
     Dosage: 270 MILLIGRAM
     Route: 041
     Dates: start: 20210630
  8. PACLITAXEL [Concomitant]
     Active Substance: PACLITAXEL
     Dosage: 270 MILLIGRAM
     Route: 041
     Dates: start: 20210727, end: 20210817

REACTIONS (7)
  - Neutrophil count decreased [Recovered/Resolved]
  - White blood cell count decreased [Recovered/Resolved]
  - Constipation [Unknown]
  - Decreased appetite [Recovered/Resolved]
  - Arthralgia [Unknown]
  - Platelet count decreased [Unknown]
  - Neuropathy peripheral [Unknown]

NARRATIVE: CASE EVENT DATE: 20210612
